FAERS Safety Report 6559512-7 (Version None)
Quarter: 2010Q1

REPORT INFORMATION
  Report Type: 
  Country: None (occurrence: None)
  Receive Date: 20100129
  Receipt Date: 20090903
  Transmission Date: 20100710
  Serious: No
  Sender: FDA-Public Use
  Company Number: US-ABBOTT-09P-163-0595662-00

PATIENT
  Sex: Female
  Weight: 55.842 kg

DRUGS (6)
  1. HUMIRA [Suspect]
     Indication: ANKYLOSING SPONDYLITIS
     Dates: start: 20090825
  2. MULTIPLE VITAMINS [Concomitant]
     Indication: ROUTINE HEALTH MAINTENANCE
  3. VITAMIN C [Concomitant]
     Indication: ROUTINE HEALTH MAINTENANCE
  4. NASALCOM [Concomitant]
     Indication: SEASONAL ALLERGY
  5. UNKNOWN ANTIHISTAMINE [Concomitant]
     Indication: HYPERSENSITIVITY
  6. UNKNOWN DECONGESTANT [Concomitant]
     Indication: HYPERSENSITIVITY

REACTIONS (5)
  - ASTHENIA [None]
  - HEADACHE [None]
  - NASAL CONGESTION [None]
  - PARANASAL SINUS HYPERSECRETION [None]
  - PYREXIA [None]
